FAERS Safety Report 23120246 (Version 1)
Quarter: 2023Q4

REPORT INFORMATION
  Report Type: Spontaneous
  Country: US (occurrence: US)
  Receive Date: 20231029
  Receipt Date: 20231029
  Transmission Date: 20240110
  Serious: No
  Sender: FDA-Public Use
  Company Number: US-OPELLA-2023OHG009163

PATIENT
  Sex: Female

DRUGS (1)
  1. ACT WHITENING ANTICAVITY GENTLE MINT [Suspect]
     Active Substance: SODIUM FLUORIDE
     Indication: Dental cleaning
     Route: 048

REACTIONS (2)
  - Drug ineffective [Unknown]
  - No adverse event [Unknown]
